FAERS Safety Report 21963037 (Version 2)
Quarter: 2023Q1

REPORT INFORMATION
  Report Type: Spontaneous
  Country: AU (occurrence: AU)
  Receive Date: 20230207
  Receipt Date: 20230327
  Transmission Date: 20230418
  Serious: Yes (Hospitalization, Other)
  Sender: FDA-Public Use
  Company Number: None

PATIENT
  Age: 71 Year
  Sex: Male
  Weight: 75 kg

DRUGS (21)
  1. ETANERCEPT [Suspect]
     Active Substance: ETANERCEPT
     Indication: Polychondritis
     Dosage: UNKNOWN
     Route: 065
     Dates: start: 2015
  2. ETANERCEPT [Suspect]
     Active Substance: ETANERCEPT
     Indication: VEXAS syndrome
     Dosage: UNKNOWN
     Route: 065
     Dates: start: 2017, end: 2018
  3. ADALIMUMAB [Suspect]
     Active Substance: ADALIMUMAB
     Indication: Polychondritis
     Dosage: UNKNOWN. START DATE: 2015
     Route: 065
  4. ADALIMUMAB [Suspect]
     Active Substance: ADALIMUMAB
     Indication: VEXAS syndrome
     Route: 058
     Dates: start: 2017, end: 2018
  5. AZATHIOPRINE [Suspect]
     Active Substance: AZATHIOPRINE
     Indication: Polychondritis
     Dosage: UNKNOWN
     Route: 065
     Dates: start: 2015
  6. AZATHIOPRINE [Suspect]
     Active Substance: AZATHIOPRINE
     Indication: VEXAS syndrome
     Dosage: UNKNOWN
     Route: 065
     Dates: start: 2016, end: 2018
  7. CYCLOSPORINE [Suspect]
     Active Substance: CYCLOSPORINE
     Indication: Polychondritis
     Dosage: UNKNOWN
     Route: 065
     Dates: start: 2015
  8. CYCLOSPORINE [Suspect]
     Active Substance: CYCLOSPORINE
     Indication: VEXAS syndrome
     Dosage: UNKNOWN
     Route: 065
     Dates: start: 2016
  9. GOLIMUMAB [Suspect]
     Active Substance: GOLIMUMAB
     Indication: Polychondritis
     Dosage: UNKNOWN
     Route: 065
     Dates: start: 2015
  10. GOLIMUMAB [Suspect]
     Active Substance: GOLIMUMAB
     Indication: VEXAS syndrome
     Dosage: UNKNOWN
     Route: 065
     Dates: start: 2017
  11. LEFLUNOMIDE [Suspect]
     Active Substance: LEFLUNOMIDE
     Indication: Polychondritis
     Dosage: UNKNOWN
     Route: 065
     Dates: start: 201903
  12. LEFLUNOMIDE [Suspect]
     Active Substance: LEFLUNOMIDE
     Indication: VEXAS syndrome
     Dosage: UNKNOWN
     Route: 065
     Dates: start: 2018
  13. METHOTREXATE [Suspect]
     Active Substance: METHOTREXATE
     Indication: Polychondritis
     Route: 065
     Dates: start: 2015
  14. METHOTREXATE [Suspect]
     Active Substance: METHOTREXATE
     Indication: VEXAS syndrome
     Route: 065
     Dates: start: 201903
  15. METHOTREXATE [Suspect]
     Active Substance: METHOTREXATE
     Route: 065
     Dates: start: 2017
  16. METHOTREXATE [Suspect]
     Active Substance: METHOTREXATE
     Route: 065
  17. PREDNISOLONE [Suspect]
     Active Substance: PREDNISOLONE
     Indication: Polychondritis
     Route: 065
     Dates: start: 2014
  18. PREDNISOLONE [Suspect]
     Active Substance: PREDNISOLONE
     Indication: VEXAS syndrome
     Route: 065
     Dates: start: 2021
  19. PREDNISOLONE [Suspect]
     Active Substance: PREDNISOLONE
     Route: 065
     Dates: start: 2019
  20. COTRIMOXAZOLE [Suspect]
     Active Substance: SULFAMETHOXAZOLE\TRIMETHOPRIM
     Indication: Nocardiosis
     Dosage: UNKNOWN
     Route: 065
  21. ABATACEPT [Concomitant]
     Active Substance: ABATACEPT
     Indication: VEXAS syndrome
     Route: 058
     Dates: start: 201903

REACTIONS (13)
  - Nocardiosis [Unknown]
  - Pancytopenia [Unknown]
  - Lung infiltration [Unknown]
  - Pyrexia [Unknown]
  - Skin lesion [Unknown]
  - Rash [Recovered/Resolved]
  - Cytopenia [Unknown]
  - Injection site reaction [Recovered/Resolved]
  - Drug ineffective [Unknown]
  - Off label use [Unknown]
  - Polychondritis [Recovered/Resolved]
  - VEXAS syndrome [Unknown]
  - Product use in unapproved indication [Unknown]

NARRATIVE: CASE EVENT DATE: 20180101
